FAERS Safety Report 19684512 (Version 9)
Quarter: 2022Q1

REPORT INFORMATION
  Report Type: Report from Study
  Country: US (occurrence: US)
  Receive Date: 20210811
  Receipt Date: 20220206
  Transmission Date: 20220423
  Serious: Yes (Hospitalization, Other)
  Sender: FDA-Public Use
  Company Number: NVSC2021US175477

PATIENT
  Age: 66 Year
  Sex: Female

DRUGS (6)
  1. ENTRESTO [Suspect]
     Active Substance: SACUBITRIL\VALSARTAN
     Indication: Product used for unknown indication
     Dosage: 0.5 DOSAGE FORM, BID (1/2 TABLET, 49/51 MG)
     Route: 048
     Dates: start: 20210728
  2. ENTRESTO [Suspect]
     Active Substance: SACUBITRIL\VALSARTAN
     Dosage: 1 DOSAGE FORM, BID (1 TABLET, 49/51 MG)
     Route: 048
     Dates: start: 20210728
  3. LISINOPRIL [Suspect]
     Active Substance: LISINOPRIL
     Indication: Product used for unknown indication
     Dosage: UNK
     Route: 065
     Dates: start: 2019, end: 202107
  4. FUROSEMIDE [Suspect]
     Active Substance: FUROSEMIDE
     Indication: Product used for unknown indication
     Dosage: UNK
     Route: 065
  5. CARVEDILOL [Suspect]
     Active Substance: CARVEDILOL
     Indication: Product used for unknown indication
     Dosage: (1/2 TABLET)
     Route: 065
  6. CARVEDILOL [Suspect]
     Active Substance: CARVEDILOL
     Dosage: 1 TABLET
     Route: 065

REACTIONS (10)
  - Palpitations [Recovering/Resolving]
  - Fluid retention [Recovered/Resolved]
  - Heart rate abnormal [Recovering/Resolving]
  - Stress [Unknown]
  - COVID-19 [Unknown]
  - Pain in extremity [Not Recovered/Not Resolved]
  - Weight fluctuation [Not Recovered/Not Resolved]
  - Asthenia [Not Recovered/Not Resolved]
  - Weight decreased [Unknown]
  - Wrong technique in product usage process [Unknown]

NARRATIVE: CASE EVENT DATE: 20200701
